FAERS Safety Report 23929337 (Version 2)
Quarter: 2025Q3

REPORT INFORMATION
  Report Type: Spontaneous
  Country: US (occurrence: US)
  Receive Date: 20240601
  Receipt Date: 20250703
  Transmission Date: 20251021
  Serious: No
  Sender: RADIUS PHARM
  Company Number: US-RADIUS HEALTH INC.-2024US002185

PATIENT
  Sex: Female
  Weight: 62.494 kg

DRUGS (5)
  1. TYMLOS [Suspect]
     Active Substance: ABALOPARATIDE
     Indication: Product used for unknown indication
     Route: 058
  2. TYMLOS [Suspect]
     Active Substance: ABALOPARATIDE
  3. TYMLOS [Suspect]
     Active Substance: ABALOPARATIDE
  4. LEVOTHYROXINE SODIUM [Concomitant]
     Active Substance: LEVOTHYROXINE SODIUM
     Indication: Product used for unknown indication
  5. METFORMIN HYDROCHLORIDE [Concomitant]
     Active Substance: METFORMIN HYDROCHLORIDE
     Indication: Product used for unknown indication

REACTIONS (8)
  - Palpitations [Unknown]
  - Pain in extremity [Unknown]
  - Arthralgia [Recovered/Resolved]
  - Burning sensation [Unknown]
  - Pollakiuria [Recovering/Resolving]
  - Paraesthesia [Unknown]
  - Nausea [Recovered/Resolved]
  - Intentional product misuse [Unknown]
